FAERS Safety Report 11121003 (Version 3)
Quarter: 2015Q3

REPORT INFORMATION
  Report Type: Spontaneous
  Country: JP (occurrence: JP)
  Receive Date: 20150519
  Receipt Date: 20150716
  Transmission Date: 20151125
  Serious: Yes (Life-Threatening, Hospitalization)
  Sender: FDA-Public Use
  Company Number: JP-ROCHE-1578505

PATIENT
  Age: 54 Year
  Sex: Male
  Weight: 67 kg

DRUGS (23)
  1. RIMATIL [Concomitant]
     Active Substance: BUCILLAMINE
     Indication: RHEUMATOID ARTHRITIS
     Route: 065
     Dates: start: 20140616, end: 20140623
  2. ALENDRONATE [Concomitant]
     Active Substance: ALENDRONATE SODIUM
     Indication: PROPHYLAXIS
     Route: 048
     Dates: start: 20140621
  3. MERCAZOLE [Concomitant]
     Active Substance: CARBIMAZOLE
     Route: 048
     Dates: start: 20140609
  4. PREDONINE [Suspect]
     Active Substance: PREDNISOLONE\PREDNISOLONE ACETATE\PREDNISOLONE SODIUM SUCCINATE
     Indication: RHEUMATOID VASCULITIS
     Route: 048
     Dates: start: 20141018, end: 20141118
  5. RIMATIL [Concomitant]
     Active Substance: BUCILLAMINE
     Indication: RHEUMATOID ARTHRITIS
     Route: 065
     Dates: start: 20140624
  6. CELECOX [Concomitant]
     Active Substance: CELECOXIB
     Indication: RHEUMATOID VASCULITIS
     Route: 048
     Dates: start: 20140609
  7. ISCOTIN [Concomitant]
     Active Substance: ISONIAZID
     Indication: PROPHYLAXIS
     Route: 048
     Dates: start: 20140801, end: 20150525
  8. PROGRAF [Concomitant]
     Active Substance: TACROLIMUS\TACROLIMUS ANHYDROUS
     Indication: RHEUMATOID VASCULITIS
     Route: 048
     Dates: start: 20150406
  9. SULFAMETHOXAZOLE AND TRIMETHOPRIM [Concomitant]
     Active Substance: SULFAMETHOXAZOLE\TRIMETHOPRIM
     Indication: PROPHYLAXIS
     Route: 048
     Dates: start: 20140822
  10. POTASSIUM IODIDE [Concomitant]
     Active Substance: POTASSIUM IODIDE
     Route: 048
  11. PREDONINE [Suspect]
     Active Substance: PREDNISOLONE\PREDNISOLONE ACETATE\PREDNISOLONE SODIUM SUCCINATE
     Indication: RHEUMATOID ARTHRITIS
     Route: 048
     Dates: start: 20140611
  12. REBAMIPIDE [Concomitant]
     Active Substance: REBAMIPIDE
     Indication: PROPHYLAXIS
     Route: 048
     Dates: start: 20140623
  13. PYDOXAL [Concomitant]
     Active Substance: PYRIDOXAL
     Indication: PROPHYLAXIS
     Route: 048
     Dates: start: 20140801
  14. PREDONINE [Suspect]
     Active Substance: PREDNISOLONE\PREDNISOLONE ACETATE\PREDNISOLONE SODIUM SUCCINATE
     Indication: RHEUMATOID VASCULITIS
     Route: 048
     Dates: start: 20141119, end: 20150114
  15. LANSOPRAZOLE. [Concomitant]
     Active Substance: LANSOPRAZOLE
     Indication: PROPHYLAXIS
     Route: 048
     Dates: start: 20140613
  16. ACTEMRA [Suspect]
     Active Substance: TOCILIZUMAB
     Indication: RHEUMATOID VASCULITIS
     Dosage: DOSAGE IS UNCERTAIN.
     Route: 041
     Dates: start: 20140818
  17. PREDONINE [Suspect]
     Active Substance: PREDNISOLONE\PREDNISOLONE ACETATE\PREDNISOLONE SODIUM SUCCINATE
     Indication: RHEUMATOID ARTHRITIS
     Route: 048
     Dates: start: 20110801, end: 20121024
  18. PREDONINE [Suspect]
     Active Substance: PREDNISOLONE\PREDNISOLONE ACETATE\PREDNISOLONE SODIUM SUCCINATE
     Indication: RHEUMATOID VASCULITIS
     Route: 048
     Dates: start: 20150115, end: 20150224
  19. PREDONINE [Suspect]
     Active Substance: PREDNISOLONE\PREDNISOLONE ACETATE\PREDNISOLONE SODIUM SUCCINATE
     Indication: RHEUMATOID VASCULITIS
     Route: 048
     Dates: start: 20150225, end: 20150308
  20. PREDONINE [Suspect]
     Active Substance: PREDNISOLONE\PREDNISOLONE ACETATE\PREDNISOLONE SODIUM SUCCINATE
     Indication: RHEUMATOID VASCULITIS
     Route: 048
     Dates: start: 20150309, end: 20150405
  21. PREDONINE [Suspect]
     Active Substance: PREDNISOLONE\PREDNISOLONE ACETATE\PREDNISOLONE SODIUM SUCCINATE
     Indication: RHEUMATOID VASCULITIS
     Route: 048
     Dates: start: 20140801
  22. PREDONINE [Suspect]
     Active Substance: PREDNISOLONE\PREDNISOLONE ACETATE\PREDNISOLONE SODIUM SUCCINATE
     Indication: RHEUMATOID VASCULITIS
     Route: 048
     Dates: start: 20140920, end: 20141017
  23. PREDONINE [Suspect]
     Active Substance: PREDNISOLONE\PREDNISOLONE ACETATE\PREDNISOLONE SODIUM SUCCINATE
     Indication: RHEUMATOID VASCULITIS
     Route: 048
     Dates: start: 20150406

REACTIONS (2)
  - Hyperlipidaemia [Not Recovered/Not Resolved]
  - Cerebral infarction [Recovering/Resolving]

NARRATIVE: CASE EVENT DATE: 201412
